FAERS Safety Report 9506826 (Version 2)
Quarter: 2013Q4

REPORT INFORMATION
  Report Type: Spontaneous
  Country: US (occurrence: US)
  Receive Date: 20130909
  Receipt Date: 20131010
  Transmission Date: 20140711
  Serious: No
  Sender: FDA-Public Use
  Company Number: US-BIOGENIDEC-2013BI081065

PATIENT
  Age: 51 Year
  Sex: Female

DRUGS (1)
  1. TYSABRI [Suspect]
     Indication: MULTIPLE SCLEROSIS
     Route: 042
     Dates: start: 20130304

REACTIONS (5)
  - Gait disturbance [Not Recovered/Not Resolved]
  - Drug ineffective [Not Recovered/Not Resolved]
  - Muscular weakness [Not Recovered/Not Resolved]
  - Frustration [Not Recovered/Not Resolved]
  - Multiple sclerosis [Not Recovered/Not Resolved]
